FAERS Safety Report 25341833 (Version 3)
Quarter: 2025Q3

REPORT INFORMATION
  Report Type: Spontaneous
  Country: AU (occurrence: AU)
  Receive Date: 20250521
  Receipt Date: 20250714
  Transmission Date: 20251020
  Serious: Yes (Other)
  Sender: OTSUKA
  Company Number: AU-MMM-Otsuka-AD0E58FI

PATIENT
  Age: 40 Year
  Sex: Male

DRUGS (5)
  1. ABILIFY [Suspect]
     Active Substance: ARIPIPRAZOLE
     Indication: Obsessive-compulsive disorder
     Route: 065
     Dates: end: 201906
  2. CLOZAPINE [Suspect]
     Active Substance: CLOZAPINE
     Indication: Schizophrenia
     Route: 065
     Dates: start: 201202
  3. CLOZAPINE [Suspect]
     Active Substance: CLOZAPINE
     Route: 065
  4. CLOZAPINE [Suspect]
     Active Substance: CLOZAPINE
     Route: 065
     Dates: start: 201604, end: 201806
  5. CLOZAPINE [Suspect]
     Active Substance: CLOZAPINE
     Route: 065

REACTIONS (22)
  - Mental impairment [Unknown]
  - Schizophrenia [Unknown]
  - Psychotic disorder [Unknown]
  - Hallucination, auditory [Unknown]
  - Coprolalia [Unknown]
  - Loss of personal independence in daily activities [Unknown]
  - Fear of disease [Unknown]
  - Adverse drug reaction [Unknown]
  - Behaviour disorder [Unknown]
  - Withdrawal syndrome [Unknown]
  - Libido disorder [Unknown]
  - Gait disturbance [Unknown]
  - Irritability [Unknown]
  - Temperature regulation disorder [Unknown]
  - Compulsive sexual behaviour [Unknown]
  - Sedation [Unknown]
  - Anxiety [Unknown]
  - Homicide [Unknown]
  - Social problem [Unknown]
  - Homeless [Unknown]
  - Refusal of treatment by patient [Unknown]
  - Product use in unapproved indication [Unknown]

NARRATIVE: CASE EVENT DATE: 20190101
